FAERS Safety Report 21538209 (Version 1)
Quarter: 2022Q4

REPORT INFORMATION
  Report Type: Report from Study
  Country: US (occurrence: US)
  Receive Date: 20221102
  Receipt Date: 20221102
  Transmission Date: 20230112
  Serious: Yes (Other)
  Sender: FDA-Public Use
  Company Number: US-ABBVIE-4182271

PATIENT
  Sex: Female

DRUGS (2)
  1. SKYRIZI [Suspect]
     Active Substance: RISANKIZUMAB-RZAA
     Indication: Psoriasis
     Dosage: WEEK 04
     Route: 058
     Dates: start: 20220525, end: 2022
  2. SKYRIZI [Suspect]
     Active Substance: RISANKIZUMAB-RZAA
     Dosage: WEEK 12
     Route: 058
     Dates: start: 2022

REACTIONS (3)
  - Metabolic surgery [Unknown]
  - Arthritis [Unknown]
  - Psoriasis [Unknown]

NARRATIVE: CASE EVENT DATE: 20220101
